FAERS Safety Report 6381690-3 (Version None)
Quarter: 2009Q3

REPORT INFORMATION
  Report Type: 
  Country: None (occurrence: None)
  Receive Date: 20090930
  Receipt Date: 20090917
  Transmission Date: 20100115
  Serious: Yes (Hospitalization, Other)
  Sender: FDA-Public Use
  Company Number: PHMT2005CA00733

PATIENT
  Sex: Female
  Weight: 58.956 kg

DRUGS (16)
  1. SANDOSTATIN LAR [Suspect]
     Indication: CARCINOID TUMOUR
     Dosage: 30 MG, QMO
     Route: 030
     Dates: start: 20050207
  2. CHEMOTHERAPEUTICS,OTHER [Suspect]
     Dosage: UNK, UNK
     Dates: start: 20051001, end: 20060209
  3. APO-AMITRIPTYLINE [Concomitant]
  4. ATIVAN [Concomitant]
     Dosage: 1 MG, QHS
  5. LIDOCAINE [Concomitant]
  6. LOSEC [Concomitant]
     Dosage: 20 MG, QD
  7. VITALUX [Concomitant]
     Dosage: VITALUX WITH LUTEIN, BID
  8. VITAMINS [Concomitant]
     Dosage: UNK, BID
  9. REFRESH PLUS [Concomitant]
     Dosage: 1 DROP TO RIGHT EYE TID, PRN
  10. ZOPICLONE [Concomitant]
     Dosage: 7.5 MG, QHS
  11. DRUG THERAPY NOS [Concomitant]
     Dosage: CREAM RX 1019740
  12. SENOKOT [Concomitant]
     Dosage: 1 TABLET, QD
  13. DRUG THERAPY NOS [Concomitant]
     Dosage: RADIOSTOPE INDIUM III
     Dates: end: 20061031
  14. DRUG THERAPY NOS [Concomitant]
     Dates: start: 20070626
  15. RADIO-THERAPY [Concomitant]
     Dosage: UNK, EVERY 6 MONTHS
     Dates: start: 20070601
  16. BIAXIN [Concomitant]
     Dosage: 500 MG, BID

REACTIONS (40)
  - ABDOMINAL DISTENSION [None]
  - ABDOMINAL PAIN [None]
  - ARTHRALGIA [None]
  - ASTHENIA [None]
  - BACK PAIN [None]
  - BLOOD BILIRUBIN INCREASED [None]
  - BLOOD CHROMOGRANIN A INCREASED [None]
  - BLOOD GLUCOSE INCREASED [None]
  - BLOOD PRESSURE DECREASED [None]
  - CHOLECYSTITIS [None]
  - CYSTITIS [None]
  - EYE IRRITATION [None]
  - FAECES DISCOLOURED [None]
  - FATIGUE [None]
  - FLANK PAIN [None]
  - GALLBLADDER OPERATION [None]
  - GAMMA-GLUTAMYLTRANSFERASE INCREASED [None]
  - HAEMOGLOBIN DECREASED [None]
  - HEPATOMEGALY [None]
  - INFLUENZA [None]
  - KIDNEY INFECTION [None]
  - MACULAR DEGENERATION [None]
  - MALIGNANT NEOPLASM PROGRESSION [None]
  - MASS [None]
  - MELANOCYTIC NAEVUS [None]
  - MENISCUS REMOVAL [None]
  - METASTASES TO LIVER [None]
  - MOLE EXCISION [None]
  - MUSCULOSKELETAL PAIN [None]
  - NAUSEA [None]
  - NECROSIS [None]
  - OEDEMA PERIPHERAL [None]
  - PAIN [None]
  - POLLAKIURIA [None]
  - POLYDIPSIA [None]
  - PYELONEPHRITIS [None]
  - PYREXIA [None]
  - SLEEP DISORDER [None]
  - SYNCOPE [None]
  - URINARY TRACT INFECTION [None]
